FAERS Safety Report 7577968-8 (Version None)
Quarter: 2011Q2

REPORT INFORMATION
  Report Type: 
  Country: None (occurrence: None)
  Receive Date: 20110628
  Receipt Date: 20110624
  Transmission Date: 20111010
  Serious: Yes (Other)
  Sender: FDA-Public Use
  Company Number: JP-PFIZER INC-2011134687

PATIENT
  Age: 82 Year
  Sex: Female
  Weight: 51 kg

DRUGS (11)
  1. LIVALO [Concomitant]
     Dosage: 1 MG/DAY
     Route: 048
  2. ASPIRIN [Concomitant]
     Dosage: UNK
  3. LYRICA [Suspect]
     Indication: PAIN
     Dosage: 50 MG, 2X/DAY
     Route: 048
     Dates: start: 20110514, end: 20110526
  4. LYRICA [Suspect]
     Dosage: 100 MG, 2X/DAY
     Route: 048
     Dates: start: 20110527, end: 20110608
  5. SELTOUCH [Concomitant]
     Dosage: UNK
  6. ONE-ALPHA [Concomitant]
     Dosage: UNK
  7. NORVASC [Concomitant]
     Dosage: 5 MG/DAY
     Route: 048
  8. TEGRETOL [Concomitant]
     Dosage: 0.9 G/DAY
     Route: 048
  9. DIAZEPAM [Concomitant]
     Dosage: 0.6 G/DAY
     Route: 048
  10. ALDACTONE [Concomitant]
     Dosage: UNK
  11. DIOVAN [Concomitant]
     Dosage: UNK

REACTIONS (6)
  - GAIT DISTURBANCE [None]
  - VISUAL ACUITY REDUCED [None]
  - VISION BLURRED [None]
  - MUSCULAR WEAKNESS [None]
  - POLLAKIURIA [None]
  - LIVING IN RESIDENTIAL INSTITUTION [None]
